FAERS Safety Report 21292922 (Version 1)
Quarter: 2022Q3

REPORT INFORMATION
  Report Type: Spontaneous
  Country: US (occurrence: US)
  Receive Date: 20220905
  Receipt Date: 20220905
  Transmission Date: 20221026
  Serious: Yes (Other)
  Sender: FDA-Public Use
  Company Number: US-SA-SAC20220901000241

PATIENT
  Sex: Male

DRUGS (1)
  1. RANITIDINE [Suspect]
     Active Substance: RANITIDINE
     Dosage: PRESCRIPTION RANITIDINE FROM APPROXIMATELY 1985 TO 2003
     Route: 048
     Dates: start: 1985, end: 2003

REACTIONS (1)
  - Prostate cancer [Unknown]
